FAERS Safety Report 6787945-2 (Version None)
Quarter: 2010Q2

REPORT INFORMATION
  Report Type: 
  Country: None (occurrence: None)
  Receive Date: 20100623
  Receipt Date: 20100616
  Transmission Date: 20101027
  Serious: Yes (Other)
  Sender: FDA-Public Use
  Company Number: US-AMGEN-QUU415643

PATIENT
  Sex: Male

DRUGS (4)
  1. NPLATE [Suspect]
     Indication: IDIOPATHIC THROMBOCYTOPENIC PURPURA
     Dates: start: 20081214, end: 20100506
  2. CORTICOSTEROIDS [Concomitant]
  3. RITUXIMAB [Concomitant]
  4. PROMACTA [Concomitant]

REACTIONS (2)
  - BONE MARROW RETICULIN FIBROSIS [None]
  - DRUG INEFFECTIVE [None]
